FAERS Safety Report 16614497 (Version 23)
Quarter: 2025Q3

REPORT INFORMATION
  Report Type: Spontaneous
  Country: US (occurrence: US)
  Receive Date: 20190723
  Receipt Date: 20250909
  Transmission Date: 20251021
  Serious: Yes (Other)
  Sender: PFIZER
  Company Number: US-PFIZER INC-2019304030

PATIENT
  Age: 66 Year
  Sex: Female
  Weight: 67.1 kg

DRUGS (3)
  1. PREMARIN [Suspect]
     Active Substance: ESTROGENS, CONJUGATED
     Indication: Thrombosis
     Dosage: 1G (INSERT 1/2 APPLICATORFUL VAGINALLY TWICE A WEEK), 2X/WEEK
     Route: 067
     Dates: start: 20190711
  2. PREMARIN [Suspect]
     Active Substance: ESTROGENS, CONJUGATED
     Indication: Atrophic vulvovaginitis
  3. PREMARIN [Suspect]
     Active Substance: ESTROGENS, CONJUGATED
     Indication: Vulval cancer stage 0
     Dosage: 0.5 GRAMS INTO VAGINA TWICE A WEEK AT NIGHT
     Route: 067

REACTIONS (15)
  - Osteoarthritis [Unknown]
  - Bone disorder [Unknown]
  - Bursa disorder [Unknown]
  - Foot fracture [Unknown]
  - Musculoskeletal discomfort [Unknown]
  - Arthralgia [Unknown]
  - Vulvovaginal dryness [Unknown]
  - Vaginal infection [Unknown]
  - Crying [Unknown]
  - Peripheral swelling [Unknown]
  - Fall [Unknown]
  - Rotator cuff syndrome [Unknown]
  - Arthritis [Unknown]
  - Psoriasis [Unknown]
  - Off label use [Unknown]
